FAERS Safety Report 17020285 (Version 12)
Quarter: 2021Q1

REPORT INFORMATION
  Report Type: Spontaneous
  Country: CA (occurrence: CA)
  Receive Date: 20191112
  Receipt Date: 20210216
  Transmission Date: 20210419
  Serious: Yes (Hospitalization, Other)
  Sender: FDA-Public Use
  Company Number: CA-TAKEDA-2019TUS063470

PATIENT
  Age: 56 Year
  Sex: Male

DRUGS (54)
  1. DEXILANT [Suspect]
     Active Substance: DEXLANSOPRAZOLE
     Dosage: UNK UNK, QD
     Route: 065
  2. DELATESTRYL [Suspect]
     Active Substance: TESTOSTERONE ENANTHATE
     Indication: PRODUCT USED FOR UNKNOWN INDICATION
     Dosage: 0.5 MILLILITER, Q2WEEKS
     Route: 030
  3. MYLAN NITRO SL [Suspect]
     Active Substance: NITROGLYCERIN
     Indication: PRINZMETAL ANGINA
     Dosage: UNK UNK, TID
     Route: 048
  4. NASONEX [Suspect]
     Active Substance: MOMETASONE FUROATE
     Dosage: UNK UNK, QD
     Route: 055
  5. APO?TRAZODONE [Suspect]
     Active Substance: TRAZODONE HYDROCHLORIDE
     Indication: PRODUCT USED FOR UNKNOWN INDICATION
     Dosage: UNK UNK, QD
     Route: 048
  6. METOCLOPRAMIDE HYDROCHLORIDE. [Suspect]
     Active Substance: METOCLOPRAMIDE HYDROCHLORIDE
     Dosage: UNK UNK, QD
     Route: 048
  7. GLYCERYL TRINITRATE [Suspect]
     Active Substance: NITROGLYCERIN
     Indication: PRINZMETAL ANGINA
     Dosage: UNK
     Route: 048
  8. ASPIRIN. [Suspect]
     Active Substance: ASPIRIN
     Indication: PRODUCT USED FOR UNKNOWN INDICATION
     Dosage: 81 MILLIGRAM, QD
     Route: 065
  9. DELATESTRYL [Suspect]
     Active Substance: TESTOSTERONE ENANTHATE
     Dosage: 0.5 MILLILITER
     Route: 030
  10. APO?ESCITALOPRAM [Suspect]
     Active Substance: ESCITALOPRAM OXALATE
     Dosage: UNK
     Route: 065
  11. METOCLOPRAMIDE HYDROCHLORIDE. [Suspect]
     Active Substance: METOCLOPRAMIDE HYDROCHLORIDE
     Indication: MIGRAINE
     Dosage: UNK UNK, TID
     Route: 048
  12. NITROGLYCERIN. [Suspect]
     Active Substance: NITROGLYCERIN
     Dosage: UNK
     Route: 048
  13. BRILINTA [Suspect]
     Active Substance: TICAGRELOR
     Indication: PRODUCT USED FOR UNKNOWN INDICATION
     Dosage: UNK UNK, BID
     Route: 048
  14. CICLOPIROX OLAMINE. [Suspect]
     Active Substance: CICLOPIROX OLAMINE
     Indication: PRODUCT USED FOR UNKNOWN INDICATION
     Dosage: UNK
     Route: 065
  15. ESCITALOPRAM [Suspect]
     Active Substance: ESCITALOPRAM OXALATE
     Dosage: UNK UNK, QD
     Route: 065
  16. TRIATEC [RAMIPRIL] [Suspect]
     Active Substance: RAMIPRIL
     Indication: PRODUCT USED FOR UNKNOWN INDICATION
     Dosage: UNK UNK, QID
     Route: 065
  17. NITROGLYCERIN. [Suspect]
     Active Substance: NITROGLYCERIN
     Dosage: UNK UNK, TID
     Route: 048
  18. METONIA [Suspect]
     Active Substance: METOCLOPRAMIDE
     Indication: MIGRAINE
     Dosage: UNK UNK, TID
     Route: 065
  19. DEXILANT [Suspect]
     Active Substance: DEXLANSOPRAZOLE
     Indication: PRODUCT USED FOR UNKNOWN INDICATION
     Dosage: 0.5 MILLILITER, QD
     Route: 048
  20. AMLODIPINE [Suspect]
     Active Substance: AMLODIPINE BESYLATE
     Indication: PRODUCT USED FOR UNKNOWN INDICATION
     Dosage: UNK UNK, QD
     Route: 065
  21. JAMP ASA [Suspect]
     Active Substance: ASPIRIN
     Indication: PRODUCT USED FOR UNKNOWN INDICATION
     Dosage: 81 MILLIGRAM, QD
     Route: 048
  22. TEVABISOPROL [Suspect]
     Active Substance: BISOPROLOL FUMARATE
     Indication: PRODUCT USED FOR UNKNOWN INDICATION
     Dosage: UNK UNK, QD
     Route: 048
  23. DELATESTRYL [Suspect]
     Active Substance: TESTOSTERONE ENANTHATE
     Dosage: 0.5 MILLILITER, Q2WEEKS
     Route: 065
  24. DELATESTRYL [Suspect]
     Active Substance: TESTOSTERONE ENANTHATE
     Dosage: UNK UNK, BID
     Route: 030
  25. EMO CORT [Suspect]
     Active Substance: HYDROCORTISONE
     Dosage: UNK UNK, QD
     Route: 061
  26. APO?ESCITALOPRAM [Suspect]
     Active Substance: ESCITALOPRAM OXALATE
     Dosage: UNK
     Route: 065
  27. RATIO?ZOPICLONE [Suspect]
     Active Substance: ZOPICLONE
     Indication: PRODUCT USED FOR UNKNOWN INDICATION
     Dosage: UNK
     Route: 048
  28. TRIATEC [RAMIPRIL] [Suspect]
     Active Substance: RAMIPRIL
     Dosage: UNK UNK, QD
     Route: 048
  29. NASONEX [Suspect]
     Active Substance: MOMETASONE FUROATE
     Indication: PRODUCT USED FOR UNKNOWN INDICATION
     Dosage: UNK UNK, QD
     Route: 065
  30. CICLOPIROX. [Suspect]
     Active Substance: CICLOPIROX
     Indication: PRODUCT USED FOR UNKNOWN INDICATION
     Dosage: UNK
     Route: 065
  31. GLYCERYL TRINITRATE [Suspect]
     Active Substance: NITROGLYCERIN
     Dosage: UNK UNK, Q8HR
     Route: 065
  32. NITROGLYCERIN. [Suspect]
     Active Substance: NITROGLYCERIN
     Indication: PRINZMETAL ANGINA
     Dosage: UNK UNK, QD
     Route: 065
  33. TRIATEC (CODEINE PHOSPHATE HEMIHYDRATE\PARACETAMOL) [Suspect]
     Active Substance: ACETAMINOPHEN\CODEINE PHOSPHATE
     Indication: PRODUCT USED FOR UNKNOWN INDICATION
     Dosage: UNK UNK, QID
     Route: 065
  34. APO TAMSULOSIN [Suspect]
     Active Substance: TAMSULOSIN HYDROCHLORIDE
     Indication: PRODUCT USED FOR UNKNOWN INDICATION
     Dosage: UNK UNK, QD
     Route: 048
  35. MOMETASONE FUROATE. [Suspect]
     Active Substance: MOMETASONE FUROATE
     Dosage: UNK UNK, QD
     Route: 055
  36. ASPIRIN. [Suspect]
     Active Substance: ASPIRIN
     Dosage: UNK UNK, QD
     Route: 048
  37. BRILINTA [Suspect]
     Active Substance: TICAGRELOR
     Dosage: UNK UNK, QD
     Route: 065
  38. DILTIAZEM                          /00489702/ [Suspect]
     Active Substance: DILTIAZEM
     Indication: PRODUCT USED FOR UNKNOWN INDICATION
     Dosage: UNK UNK, QD
     Route: 048
  39. ESCITALOPRAM [Suspect]
     Active Substance: ESCITALOPRAM OXALATE
     Indication: PRINZMETAL ANGINA
     Dosage: UNK UNK, QD
     Route: 065
  40. APO?ESCITALOPRAM [Suspect]
     Active Substance: ESCITALOPRAM OXALATE
     Indication: PRINZMETAL ANGINA
     Dosage: UNK UNK, QD
     Route: 065
  41. NITRO?DUR [Suspect]
     Active Substance: NITROGLYCERIN
     Indication: PRODUCT USED FOR UNKNOWN INDICATION
     Dosage: UNK UNK, QD
     Route: 065
  42. ROSUVASTATIN. [Suspect]
     Active Substance: ROSUVASTATIN
     Indication: PRODUCT USED FOR UNKNOWN INDICATION
     Dosage: UNK UNK, QD
     Route: 065
  43. GLYCERYL TRINITRATE [Suspect]
     Active Substance: NITROGLYCERIN
     Dosage: UNK UNK, QD
     Route: 065
  44. MOMETASONE FUROATE. [Suspect]
     Active Substance: MOMETASONE FUROATE
     Indication: PRODUCT USED FOR UNKNOWN INDICATION
     Dosage: UNK UNK, QD
     Route: 065
  45. TESTOSTERONE. [Suspect]
     Active Substance: TESTOSTERONE
     Indication: PRODUCT USED FOR UNKNOWN INDICATION
     Dosage: 0.5 MILLILITER
     Route: 065
  46. NASONEX [Suspect]
     Active Substance: MOMETASONE FUROATE
     Indication: PRODUCT USED FOR UNKNOWN INDICATION
     Dosage: UNK UNK, QD
     Route: 045
  47. ROSUVASTATIN. [Suspect]
     Active Substance: ROSUVASTATIN
     Dosage: UNK UNK, QD
     Route: 048
  48. SYNTHROID [Suspect]
     Active Substance: LEVOTHYROXINE SODIUM
     Indication: PRODUCT USED FOR UNKNOWN INDICATION
     Dosage: UNK UNK, QD
     Route: 065
  49. BISOPROLOL                         /00802602/ [Suspect]
     Active Substance: BISOPROLOL
     Indication: PRODUCT USED FOR UNKNOWN INDICATION
     Dosage: UNK UNK, QD
     Route: 065
  50. RIVOTRIL [Suspect]
     Active Substance: CLONAZEPAM
     Indication: PRODUCT USED FOR UNKNOWN INDICATION
     Dosage: UNK UNK, TID
     Route: 048
  51. RIVOTRIL [Suspect]
     Active Substance: CLONAZEPAM
     Dosage: UNK UNK, QD
     Route: 048
  52. EMO CORT [Suspect]
     Active Substance: HYDROCORTISONE
     Indication: PRODUCT USED FOR UNKNOWN INDICATION
     Dosage: UNK UNK, QD
     Route: 061
  53. MYLAN NITRO SL [Suspect]
     Active Substance: NITROGLYCERIN
     Indication: PRINZMETAL ANGINA
     Dosage: UNK UNK, QD
     Route: 048
  54. NASONEX [Suspect]
     Active Substance: MOMETASONE FUROATE
     Dosage: UNK UNK, QD
     Route: 045

REACTIONS (3)
  - Device malfunction [Recovered/Resolved]
  - Device dislocation [Recovered/Resolved]
  - Drug ineffective [Recovered/Resolved]
